FAERS Safety Report 8370956-3 (Version None)
Quarter: 2012Q2

REPORT INFORMATION
  Report Type: 
  Country: None (occurrence: None)
  Receive Date: 20120518
  Receipt Date: 20120511
  Transmission Date: 20120825
  Serious: Yes (Life-Threatening, Hospitalization, Other)
  Sender: FDA-Public Use
  Company Number: US-PFIZER INC-HQWYE296910MAR06

PATIENT
  Sex: Female

DRUGS (2)
  1. PREMPRO [Suspect]
     Indication: HORMONE REPLACEMENT THERAPY
     Dosage: 0.625/2.5 MG
     Route: 048
     Dates: start: 20000601, end: 20040501
  2. PREMPRO [Suspect]
     Indication: DEMENTIA ALZHEIMER'S TYPE

REACTIONS (10)
  - PULMONARY EMBOLISM [None]
  - PAIN IN EXTREMITY [None]
  - PHLEBITIS [None]
  - BACK PAIN [None]
  - CHOLECYSTITIS ACUTE [None]
  - CHOLELITHIASIS [None]
  - DEEP VEIN THROMBOSIS [None]
  - RENAL INJURY [None]
  - BREAST MASS [None]
  - MUSCULOSKELETAL CHEST PAIN [None]
